FAERS Safety Report 8023754-4 (Version None)
Quarter: 2012Q1

REPORT INFORMATION
  Report Type: 
  Country: None (occurrence: None)
  Receive Date: 20120105
  Receipt Date: 20111227
  Transmission Date: 20120608
  Serious: Yes (Other)
  Sender: FDA-Public Use
  Company Number: DE-ELI_LILLY_AND_COMPANY-DE201111000839

PATIENT
  Age: 47 Year
  Sex: Female
  Weight: 88 kg

DRUGS (2)
  1. OLANZAPINE [Suspect]
     Indication: SCHIZOPHRENIA, PARANOID TYPE
     Dosage: 210 MG, UNKNOWN
     Route: 030
     Dates: start: 20110301
  2. CITALOPRAM HYDROBROMIDE [Concomitant]
     Dosage: 20 MG, UNK

REACTIONS (9)
  - RESTLESSNESS [None]
  - AKATHISIA [None]
  - ASTHENIA [None]
  - SOMNOLENCE [None]
  - EXTRAPYRAMIDAL DISORDER [None]
  - SEDATION [None]
  - TONGUE DISORDER [None]
  - DIZZINESS [None]
  - MALAISE [None]
